FAERS Safety Report 6411143-5 (Version None)
Quarter: 2009Q4

REPORT INFORMATION
  Report Type: 
  Country: None (occurrence: None)
  Receive Date: 20091022
  Receipt Date: 20091013
  Transmission Date: 20100525
  Serious: Yes (Hospitalization)
  Sender: FDA-Public Use
  Company Number: GB-PFIZER INC-2009275403

PATIENT
  Age: 70 Year

DRUGS (3)
  1. LIPITOR [Suspect]
     Dosage: 20 MG, 1X/DAY
  2. LIPITOR [Interacting]
     Dosage: 40 MG, 1X/DAY
  3. WARFARIN [Interacting]
     Dosage: UNK

REACTIONS (4)
  - CHEST PAIN [None]
  - DRUG INTERACTION [None]
  - DRUG LEVEL FLUCTUATING [None]
  - INSOMNIA [None]
